FAERS Safety Report 6245091-0 (Version None)
Quarter: 2009Q2

REPORT INFORMATION
  Report Type: 
  Country: None (occurrence: None)
  Receive Date: 20090625
  Receipt Date: 20090622
  Transmission Date: 20091009
  Serious: Yes (Life-Threatening, Hospitalization)
  Sender: FDA-Public Use
  Company Number: RU-ROCHE-628292

PATIENT
  Age: 26 Year
  Sex: Male

DRUGS (5)
  1. ROACCUTANE [Suspect]
     Indication: ACNE
     Dosage: FREQUENCY: DAILY
     Route: 048
     Dates: start: 20081015
  2. ROACCUTANE [Suspect]
     Dosage: ROACCUTANE WAS PERMANENTLY DISCONTINUED.
     Route: 048
     Dates: start: 20081115, end: 20090220
  3. VENTOLIN [Concomitant]
     Dates: start: 20060101
  4. ZINERYT [Concomitant]
     Indication: ACNE
     Dosage: DRUG NAME REPORTED AS: ZINERIT
     Dates: start: 20070101
  5. CLEARASIL ANTIBACTERIAL SOAP [Concomitant]
     Indication: ACNE
     Dosage: DRUG NAME: CLEARASIL SOAP
     Dates: start: 20070101

REACTIONS (15)
  - ABDOMINAL PAIN [None]
  - ACNE [None]
  - AGITATION [None]
  - ALOPECIA [None]
  - ANOREXIA [None]
  - ARTHRALGIA [None]
  - DELUSION [None]
  - DEPRESSED MOOD [None]
  - FURUNCLE [None]
  - HAIR DISORDER [None]
  - INSOMNIA [None]
  - IRRITABILITY [None]
  - RENAL PAIN [None]
  - SUICIDAL IDEATION [None]
  - WEIGHT DECREASED [None]
